FAERS Safety Report 9280574 (Version 1)
Quarter: 2013Q2

REPORT INFORMATION
  Report Type: Spontaneous
  Country: FR (occurrence: FR)
  Receive Date: 20130509
  Receipt Date: 20130509
  Transmission Date: 20140414
  Serious: Yes (Other)
  Sender: FDA-Public Use
  Company Number: FR-SANOFI-AVENTIS-2013SA044323

PATIENT
  Age: 28 Year
  Sex: Female
  Weight: 55 kg

DRUGS (2)
  1. RIFADINE [Suspect]
     Indication: LATENT TUBERCULOSIS
     Route: 048
     Dates: start: 20130119, end: 20130124
  2. RIMIFON [Suspect]
     Indication: LATENT TUBERCULOSIS
     Route: 048
     Dates: start: 20130119, end: 20130124

REACTIONS (6)
  - Fatigue [Recovering/Resolving]
  - Condition aggravated [Recovering/Resolving]
  - Disturbance in attention [Recovering/Resolving]
  - Vertigo [Recovered/Resolved]
  - Nausea [Recovered/Resolved]
  - Headache [Recovered/Resolved]
